FAERS Safety Report 5010663-8 (Version None)
Quarter: 2006Q2

REPORT INFORMATION
  Report Type: 
  Country: None (occurrence: None)
  Receive Date: 20060525
  Receipt Date: 20060519
  Transmission Date: 20061013
  Serious: Yes (Hospitalization, Other)
  Sender: FDA-Public Use
  Company Number: DE-JNJFOC-20060500254

PATIENT
  Sex: Male

DRUGS (6)
  1. RISPERDAL CONSTA [Suspect]
     Indication: SCHIZOPHRENIA
     Route: 030
  2. ACTRAPHANE [Concomitant]
     Route: 058
  3. NEXIUM [Concomitant]
     Route: 048
  4. OBSIDAN [Concomitant]
  5. ALDACTONE [Concomitant]
     Route: 048
  6. NEURO RATIO [Concomitant]
     Route: 048

REACTIONS (2)
  - JAUNDICE [None]
  - LIVER DISORDER [None]
